FAERS Safety Report 17281378 (Version 2)
Quarter: 2020Q1

REPORT INFORMATION
  Report Type: Spontaneous
  Country: JP (occurrence: JP)
  Receive Date: 20200117
  Receipt Date: 20200304
  Transmission Date: 20200409
  Serious: Yes (Hospitalization, Other)
  Sender: FDA-Public Use
  Company Number: JP-LUPIN PHARMACEUTICALS INC.-2020-00251

PATIENT
  Age: 63 Year
  Sex: Male

DRUGS (6)
  1. HYDROCORTISONE. [Suspect]
     Active Substance: HYDROCORTISONE
     Dosage: UNK
     Route: 042
  2. PREDNISOLONE VALERATE ACETATE [Suspect]
     Active Substance: PREDNISOLONE VALERATE ACETATE
     Indication: ECZEMA
     Dosage: UNK
     Route: 061
  3. HYDROCORTISONE. [Suspect]
     Active Substance: HYDROCORTISONE
     Indication: ECZEMA
     Dosage: UNK
     Route: 061
  4. BETAMETHASONE. [Suspect]
     Active Substance: BETAMETHASONE
     Indication: ECZEMA
     Dosage: UNK
     Route: 061
  5. BETAMETHASONE. [Suspect]
     Active Substance: BETAMETHASONE
     Dosage: UNK
     Route: 061
  6. PREDNISOLONE VALERATE ACETATE [Suspect]
     Active Substance: PREDNISOLONE VALERATE ACETATE
     Dosage: UNK
     Route: 061

REACTIONS (1)
  - Adrenal insufficiency [Recovered/Resolved]
